FAERS Safety Report 25659414 (Version 1)
Quarter: 2025Q3

REPORT INFORMATION
  Report Type: Spontaneous
  Country: US (occurrence: US)
  Receive Date: 20250808
  Receipt Date: 20250808
  Transmission Date: 20251021
  Serious: No
  Sender: SANOFI AVENTIS
  Company Number: US-SA-2025SA231294

PATIENT
  Sex: Male
  Weight: 88.64 kg

DRUGS (8)
  1. DUPIXENT [Suspect]
     Active Substance: DUPILUMAB
     Indication: Nasal polyps
     Dosage: 300 MG, QOW
     Route: 058
  2. TYLENOL [Concomitant]
     Active Substance: ACETAMINOPHEN
  3. MAGNESIUM [Concomitant]
     Active Substance: MAGNESIUM
  4. FLUTICASONE PROPIONATE [Concomitant]
     Active Substance: FLUTICASONE PROPIONATE
  5. HYDROXYUREA [Concomitant]
     Active Substance: HYDROXYUREA
  6. VERAPAMIL [Concomitant]
     Active Substance: VERAPAMIL HYDROCHLORIDE
  7. ATORVASTATIN CALCIUM [Concomitant]
     Active Substance: ATORVASTATIN CALCIUM
  8. XARELTO [Concomitant]
     Active Substance: RIVAROXABAN

REACTIONS (1)
  - Drug hypersensitivity [Unknown]
